FAERS Safety Report 9638946 (Version 2)
Quarter: 2013Q4

REPORT INFORMATION
  Report Type: Spontaneous
  Country: JP (occurrence: JP)
  Receive Date: 20131022
  Receipt Date: 20131114
  Transmission Date: 20140711
  Serious: Yes (Hospitalization)
  Sender: FDA-Public Use
  Company Number: JP-B.I. PHARMACEUTICALS,INC./RIDGEFIELD-2013-BI-32948NB

PATIENT
  Age: 61 Year
  Sex: Male
  Weight: 56.6 kg

DRUGS (6)
  1. PRAZAXA [Suspect]
     Indication: ATRIAL FIBRILLATION
     Dosage: 220 MG
     Route: 048
     Dates: end: 20131105
  2. OLMETEC [Concomitant]
     Indication: HYPERTENSION
     Dosage: 20 MG
     Route: 065
  3. AMLODIPINE OD [Concomitant]
     Indication: HYPERTENSION
     Dosage: 2.5 MG
     Route: 065
  4. CRESTOR [Concomitant]
     Indication: DYSLIPIDAEMIA
     Route: 065
  5. PROMAC [Concomitant]
     Indication: DYSGEUSIA
     Route: 065
  6. CONIEL [Concomitant]
     Route: 065

REACTIONS (2)
  - Thalamus haemorrhage [Recovered/Resolved]
  - Diplopia [Unknown]
